FAERS Safety Report 17224914 (Version 1)
Quarter: 2020Q1

REPORT INFORMATION
  Report Type: Spontaneous
  Country: KR (occurrence: KR)
  Receive Date: 20200102
  Receipt Date: 20200102
  Transmission Date: 20200409
  Serious: Yes (Other)
  Sender: FDA-Public Use
  Company Number: KR-GLAXOSMITHKLINE-KR2019GSK237000

PATIENT
  Age: 29 Year
  Sex: Male

DRUGS (3)
  1. LAMIVUDINE. [Suspect]
     Active Substance: LAMIVUDINE
     Indication: HIV INFECTION
     Dosage: UNK
  2. ABACAVIR. [Suspect]
     Active Substance: ABACAVIR
     Indication: HIV INFECTION
     Dosage: UNK
  3. DOLUTEGRAVIR [Suspect]
     Active Substance: DOLUTEGRAVIR
     Indication: HIV INFECTION
     Dosage: UNK

REACTIONS (7)
  - Encephalitis [Unknown]
  - Muscular weakness [Unknown]
  - Condition aggravated [Unknown]
  - Immune reconstitution inflammatory syndrome [Recovered/Resolved]
  - Dysarthria [Unknown]
  - Muscle spasticity [Unknown]
  - Muscle rigidity [Unknown]
